FAERS Safety Report 7249775-7 (Version None)
Quarter: 2011Q1

REPORT INFORMATION
  Report Type: 
  Country: None (occurrence: None)
  Receive Date: 20110128
  Receipt Date: 20100308
  Transmission Date: 20110831
  Serious: No
  Sender: FDA-Public Use
  Company Number: A0850697A

PATIENT

DRUGS (4)
  1. IMIPRAMINE [Suspect]
     Indication: DEPRESSION
     Route: 065
  2. DESIPRAMIDE HCL [Suspect]
     Indication: DEPRESSION
     Route: 065
  3. WELLBUTRIN [Suspect]
     Indication: DEPRESSION
     Route: 048
  4. PROZAC [Suspect]
     Indication: DEPRESSION
     Route: 065

REACTIONS (4)
  - DRY MOUTH [None]
  - HEADACHE [None]
  - DRUG INEFFECTIVE [None]
  - ADVERSE EVENT [None]
